FAERS Safety Report 12953633 (Version 3)
Quarter: 2016Q4

REPORT INFORMATION
  Report Type: Spontaneous
  Country: IT (occurrence: IT)
  Receive Date: 20161117
  Receipt Date: 20161129
  Transmission Date: 20170207
  Serious: Yes (Other)
  Sender: FDA-Public Use
  Company Number: IT-ABBVIE-16P-083-1785304-00

PATIENT
  Age: 19 Year
  Sex: Female

DRUGS (3)
  1. LUMINALE (PHENOBARBITAL SODIUM) [Suspect]
     Active Substance: PHENOBARBITAL SODIUM
     Indication: EPILEPSY CONGENITAL
     Route: 048
  2. DEPAKIN [Suspect]
     Active Substance: VALPROATE SODIUM
     Indication: EPILEPSY CONGENITAL
     Route: 048
  3. TOPAMAX [Suspect]
     Active Substance: TOPIRAMATE
     Indication: EPILEPSY CONGENITAL
     Route: 048

REACTIONS (1)
  - Hyperthyroidism [Recovering/Resolving]

NARRATIVE: CASE EVENT DATE: 20161030
